FAERS Safety Report 17035972 (Version 2)
Quarter: 2019Q4

REPORT INFORMATION
  Report Type: Spontaneous
  Country: JP (occurrence: JP)
  Receive Date: 20191115
  Receipt Date: 20191207
  Transmission Date: 20200122
  Serious: No
  Sender: FDA-Public Use
  Company Number: JP-AMGEN-JPNSP2019162887

PATIENT
  Age: 63 Year
  Sex: Female

DRUGS (2)
  1. NEORAL [Concomitant]
     Active Substance: CYCLOSPORINE
     Dosage: UNK
  2. REPATHA [Suspect]
     Active Substance: EVOLOCUMAB
     Indication: PRODUCT USED FOR UNKNOWN INDICATION
     Dosage: 140 MILLIGRAM, Q2WK
     Route: 058
     Dates: start: 20190822

REACTIONS (1)
  - Drug level increased [Unknown]
